FAERS Safety Report 7297778-9 (Version None)
Quarter: 2011Q1

REPORT INFORMATION
  Report Type: 
  Country: None (occurrence: None)
  Receive Date: 20110214
  Receipt Date: 20110214
  Transmission Date: 20110831
  Serious: Yes (Hospitalization, Other)
  Sender: FDA-Public Use
  Company Number: None

PATIENT
  Sex: Male
  Weight: 104.3273 kg

DRUGS (17)
  1. VESICARE [Concomitant]
  2. PRILOSEC [Concomitant]
  3. NABUMETONE [Concomitant]
  4. ZYPREXA [Suspect]
     Indication: SCHIZOAFFECTIVE DISORDER
     Dates: start: 20090701, end: 20101220
  5. DAILY VIT. [Concomitant]
  6. METAMUCIL-2 [Concomitant]
  7. APAP TAB [Concomitant]
  8. KLONOPIN [Concomitant]
  9. SENNA S [Concomitant]
  10. SPIRIVA [Concomitant]
  11. CALCIUM [Concomitant]
  12. VALPROIC ACID [Concomitant]
  13. HALDOL LACT [Concomitant]
  14. ZYPREXA [Concomitant]
  15. HALDOL [Concomitant]
  16. COGENTIN [Concomitant]
  17. ZOCOR [Concomitant]

REACTIONS (3)
  - DIABETES MELLITUS [None]
  - SLUGGISHNESS [None]
  - UNRESPONSIVE TO STIMULI [None]
